FAERS Safety Report 6068693-3 (Version None)
Quarter: 2009Q1

REPORT INFORMATION
  Report Type: 
  Country: None (occurrence: None)
  Receive Date: 20090206
  Receipt Date: 20090128
  Transmission Date: 20090719
  Serious: Yes (Hospitalization)
  Sender: FDA-Public Use
  Company Number: B0555757A

PATIENT
  Age: 12 Year
  Sex: Female

DRUGS (2)
  1. LAMOTRIGINE [Suspect]
     Route: 065
  2. VALPROATE SODIUM [Concomitant]
     Route: 065

REACTIONS (14)
  - ALOPECIA [None]
  - ANAEMIA [None]
  - BLISTER [None]
  - C-REACTIVE PROTEIN INCREASED [None]
  - CONFUSIONAL STATE [None]
  - DIARRHOEA [None]
  - HYPOTENSION [None]
  - NEUTROPENIA [None]
  - ONYCHOMADESIS [None]
  - PYREXIA [None]
  - RASH ERYTHEMATOUS [None]
  - SKIN DISORDER [None]
  - SKIN HYPOPIGMENTATION [None]
  - TOXIC EPIDERMAL NECROLYSIS [None]
